FAERS Safety Report 26175950 (Version 2)
Quarter: 2025Q4

REPORT INFORMATION
  Report Type: Spontaneous
  Country: EU (occurrence: EU)
  Receive Date: 20251218
  Receipt Date: 20251223
  Transmission Date: 20260118
  Serious: Yes (Other)
  Sender: ORGANON
  Company Number: EU-ORGANON-O2512FRA001204

PATIENT
  Age: 27 Year
  Sex: Female

DRUGS (1)
  1. NEXPLANON [Suspect]
     Active Substance: ETONOGESTREL
     Dosage: 1 IMPLANT

REACTIONS (5)
  - Syncope [Not Recovered/Not Resolved]
  - Nausea [Not Recovered/Not Resolved]
  - Dyspnoea [Not Recovered/Not Resolved]
  - Asthenia [Not Recovered/Not Resolved]
  - Flank pain [Not Recovered/Not Resolved]
